FAERS Safety Report 5562439-0 (Version None)
Quarter: 2007Q4

REPORT INFORMATION
  Report Type: 
  Country: None (occurrence: None)
  Receive Date: 20071215
  Receipt Date: 20070503
  Transmission Date: 20080405
  Serious: No
  Sender: FDA-Public Use
  Company Number: US-AMGEN-US222900

PATIENT
  Sex: Male

DRUGS (3)
  1. ARANESP [Suspect]
     Indication: ANAEMIA
  2. EXJADE [Concomitant]
     Dates: start: 20070101
  3. BLOOD CELLS, PACKED HUMAN [Concomitant]

REACTIONS (1)
  - TRANSFUSION [None]
